FAERS Safety Report 25722280 (Version 1)
Quarter: 2025Q3

REPORT INFORMATION
  Report Type: Report from Study
  Country: CO (occurrence: CO)
  Receive Date: 20250825
  Receipt Date: 20250825
  Transmission Date: 20251021
  Serious: Yes (Hospitalization, Other)
  Sender: ASTELLAS
  Company Number: CO-ASTELLAS-2025-AER-046345

PATIENT
  Age: 47 Year
  Sex: Female
  Weight: 49 kg

DRUGS (2)
  1. TACROLIMUS [Suspect]
     Active Substance: TACROLIMUS
     Indication: Renal transplant
     Dosage: TACROLIMUS XL 3MG (2 CAPSULES), DAILY DOSE OF 6MG EVERY 24 HOURS
     Route: 048
     Dates: end: 202507
  2. TACROLIMUS [Suspect]
     Active Substance: TACROLIMUS
     Indication: Renal transplant
     Dosage: 7 CAPSULES OF TACROLIMUS 1MG, DAILY DOSE OF 7MG, EVERY 24 HOURS
     Route: 048
     Dates: start: 2025

REACTIONS (4)
  - Urine abnormality [Unknown]
  - Herpes virus infection [Unknown]
  - Eye swelling [Unknown]
  - Limb discomfort [Unknown]

NARRATIVE: CASE EVENT DATE: 20250601
